FAERS Safety Report 7339516-7 (Version None)
Quarter: 2011Q1

REPORT INFORMATION
  Report Type: 
  Country: None (occurrence: None)
  Receive Date: 20110308
  Receipt Date: 20110131
  Transmission Date: 20110831
  Serious: No
  Sender: FDA-Public Use
  Company Number: US-AMGEN-USASP2011005683

PATIENT
  Age: 85 Year
  Sex: Female

DRUGS (8)
  1. PROLIA [Suspect]
     Indication: OSTEOPOROSIS POSTMENOPAUSAL
     Dosage: UNK UNK, Q6MO
     Dates: start: 20100101
  2. CALCIUM [Concomitant]
     Dosage: 1 MG, UNK
  3. NIACIN [Concomitant]
     Dosage: 3 MG, UNK
  4. LEVOTHYROXINE [Concomitant]
     Dosage: 1 A?G, UNK
  5. AVALIDE [Concomitant]
     Dosage: UNK
  6. VITAMIN B-12 [Concomitant]
  7. VITAMIN A [Concomitant]
     Dosage: 1 A?G, UNK
  8. TOPROL-XL [Concomitant]
     Dosage: UNK

REACTIONS (3)
  - BONE PAIN [None]
  - NERVOUSNESS [None]
  - SLEEP DISORDER [None]
